FAERS Safety Report 14526947 (Version 1)
Quarter: 2018Q1

REPORT INFORMATION
  Report Type: Spontaneous
  Country: US (occurrence: US)
  Receive Date: 20180212
  Receipt Date: 20180212
  Transmission Date: 20180509
  Serious: Yes (Other)
  Sender: FDA-Public Use
  Company Number: None

PATIENT
  Age: 79 Year
  Sex: Female

DRUGS (12)
  1. IRON [Concomitant]
     Active Substance: IRON
  2. CIMETIDINE [Concomitant]
     Active Substance: CIMETIDINE
  3. MVI [Concomitant]
     Active Substance: VITAMINS
  4. GEMFIBROZIL. [Concomitant]
     Active Substance: GEMFIBROZIL
  5. LISINOPRIL. [Concomitant]
     Active Substance: LISINOPRIL
  6. GLIMIPIRIDE [Concomitant]
     Active Substance: GLIMEPIRIDE
  7. ANASTROZOLE. [Suspect]
     Active Substance: ANASTROZOLE
     Indication: BREAST CANCER
     Dosage: ?          QUANTITY:1 TABLET(S);?
     Route: 048
  8. VITAMIN D3 [Concomitant]
     Active Substance: CHOLECALCIFEROL
  9. MAGOX [Concomitant]
  10. CALCIUM AND VIT D3 [Concomitant]
  11. APAP [Concomitant]
     Active Substance: ACETAMINOPHEN
  12. LABETALOL [Concomitant]
     Active Substance: LABETALOL\LABETALOL HYDROCHLORIDE

REACTIONS (6)
  - Peripheral swelling [None]
  - Joint stiffness [None]
  - Musculoskeletal stiffness [None]
  - Arthralgia [None]
  - Back pain [None]
  - Gait disturbance [None]

NARRATIVE: CASE EVENT DATE: 20180112
